FAERS Safety Report 4975767-4 (Version None)
Quarter: 2006Q2

REPORT INFORMATION
  Report Type: 
  Country: None (occurrence: None)
  Receive Date: 20060411
  Receipt Date: 20060323
  Transmission Date: 20061013
  Serious: Yes (Death)
  Sender: FDA-Public Use
  Company Number: DE200603002840

PATIENT
  Age: 79 Year
  Sex: Female

DRUGS (2)
  1. FORTEO [Suspect]
     Indication: OSTEOPOROSIS
     Dates: start: 20050421, end: 20050101
  2. FORTEO [Concomitant]

REACTIONS (2)
  - CARDIAC FAILURE [None]
  - CARDIOVASCULAR DISORDER [None]
